FAERS Safety Report 18037277 (Version 1)
Quarter: 2020Q3

REPORT INFORMATION
  Report Type: Report from Study
  Country: MX (occurrence: MX)
  Receive Date: 20200717
  Receipt Date: 20200717
  Transmission Date: 20201103
  Serious: Yes (Other)
  Sender: FDA-Public Use
  Company Number: NVSC2020MX198280

PATIENT
  Sex: Male
  Weight: 100 kg

DRUGS (2)
  1. EXFORGE [Suspect]
     Active Substance: AMLODIPINE BESYLATE\VALSARTAN
     Indication: HYPERTENSION
     Dosage: 1 DF, QD(STARTED MORE THAN 2 YEARS AGO)
     Route: 048
  2. LEVOTIROXIN [Suspect]
     Active Substance: LEVOTHYROXINE SODIUM
     Indication: THYROID DISORDER
     Dosage: 0.5 DF, QD
     Route: 048
     Dates: start: 202003

REACTIONS (6)
  - Syncope [Unknown]
  - Drug ineffective [Unknown]
  - Blood pressure increased [Unknown]
  - Affect lability [Unknown]
  - Thyroid disorder [Unknown]
  - Blood pressure fluctuation [Unknown]
